FAERS Safety Report 16191204 (Version 1)
Quarter: 2019Q2

REPORT INFORMATION
  Report Type: Spontaneous
  Country: US (occurrence: US)
  Receive Date: 20190412
  Receipt Date: 20190412
  Transmission Date: 20190711
  Serious: Yes (Hospitalization)
  Sender: FDA-Public Use
  Company Number: US-BAYER-2015-019557

PATIENT
  Age: 78 Year
  Sex: Male

DRUGS (3)
  1. XARELTO [Suspect]
     Active Substance: RIVAROXABAN
     Indication: DEEP VEIN THROMBOSIS
     Dosage: 20 MG, UNK
     Route: 048
     Dates: start: 20140721, end: 20151116
  2. XARELTO [Suspect]
     Active Substance: RIVAROXABAN
     Indication: ANTIPHOSPHOLIPID SYNDROME
  3. BAYER LOW DOSE [Suspect]
     Active Substance: ASPIRIN
     Indication: ANTIPHOSPHOLIPID SYNDROME
     Dosage: 81 MG, QD
     Route: 048

REACTIONS (2)
  - Iron deficiency anaemia [Recovering/Resolving]
  - Faeces discoloured [Recovering/Resolving]

NARRATIVE: CASE EVENT DATE: 2014
